FAERS Safety Report 11276990 (Version 3)
Quarter: 2015Q3

REPORT INFORMATION
  Report Type: Spontaneous
  Country: SE (occurrence: SE)
  Receive Date: 20150716
  Receipt Date: 20150910
  Transmission Date: 20151125
  Serious: Yes (Hospitalization, Other)
  Sender: FDA-Public Use
  Company Number: SE-ELI_LILLY_AND_COMPANY-SE201506004817

PATIENT
  Age: 77 Year
  Sex: Male

DRUGS (1)
  1. ZYPADHERA [Suspect]
     Active Substance: OLANZAPINE PAMOATE
     Indication: SCHIZOAFFECTIVE DISORDER
     Dosage: 300 MG, UNKNOWN
     Route: 030

REACTIONS (7)
  - Gait disturbance [Recovered/Resolved]
  - Fatigue [Recovered/Resolved]
  - Dysarthria [Recovered/Resolved]
  - Somnolence [Recovered/Resolved]
  - Confusional state [Recovered/Resolved]
  - Clumsiness [Recovered/Resolved]
  - Decreased interest [Recovered/Resolved]

NARRATIVE: CASE EVENT DATE: 2015
